FAERS Safety Report 11276390 (Version 2)
Quarter: 2015Q3

REPORT INFORMATION
  Report Type: Spontaneous
  Country: US (occurrence: US)
  Receive Date: 20150716
  Receipt Date: 20150807
  Transmission Date: 20151125
  Serious: No
  Sender: FDA-Public Use
  Company Number: US-PFIZER INC-2015232703

PATIENT
  Age: 59 Year
  Sex: Male
  Weight: 100 kg

DRUGS (2)
  1. GABAPENTIN. [Suspect]
     Active Substance: GABAPENTIN
     Indication: NEUROPATHY PERIPHERAL
     Dosage: 300 MG TWO IN THE MORNING, TWO AT 1 O CLOCK, TWO AT 6 O CLOCK AND TWO BEFORE BED
  2. LYRICA [Concomitant]
     Active Substance: PREGABALIN
     Dosage: 75 MG IN THE MORNING ONE PILL AND ONE PILL AT NIGH

REACTIONS (5)
  - Feeling cold [Unknown]
  - Pain [Unknown]
  - Hypoaesthesia [Unknown]
  - Drug ineffective [Unknown]
  - Burning sensation [Unknown]
